FAERS Safety Report 9842844 (Version 1)
Quarter: 2013Q4

REPORT INFORMATION
  Report Type: Spontaneous
  Country: US (occurrence: None)
  Receive Date: 20131223
  Receipt Date: 20131223
  Transmission Date: 20140711
  Serious: No
  Sender: FDA-Public Use
  Company Number: 221544LEO

PATIENT
  Age: 55 Year
  Sex: Male

DRUGS (2)
  1. PICATO (0.015%) [Suspect]
     Indication: ACTINIC KERATOSIS
     Route: 061
     Dates: start: 20130413, end: 20130415
  2. ALLOPURINOL (ALLOPURINOL) [Concomitant]

REACTIONS (5)
  - Application site dryness [None]
  - Application site vesicles [None]
  - Application site exfoliation [None]
  - Periorbital oedema [None]
  - Drug administered at inappropriate site [None]
